FAERS Safety Report 10340381 (Version 1)
Quarter: 2014Q3

REPORT INFORMATION
  Report Type: Report from Study
  Country: FR (occurrence: FR)
  Receive Date: 20140724
  Receipt Date: 20140724
  Transmission Date: 20150326
  Serious: Yes (Hospitalization)
  Sender: FDA-Public Use
  Company Number: FR-BRISTOL-MYERS SQUIBB COMPANY-21228440

PATIENT
  Age: 77 Year
  Sex: Male

DRUGS (1)
  1. CETUXIMAB [Suspect]
     Active Substance: CETUXIMAB
     Indication: SQUAMOUS CELL CARCINOMA OF HEAD AND NECK
     Dosage: 435 MG-5AUG13
     Route: 042
     Dates: start: 20130624, end: 20130809

REACTIONS (6)
  - Bronchitis [Recovered/Resolved]
  - Radiation skin injury [Recovered/Resolved]
  - General physical health deterioration [Recovered/Resolved]
  - Diabetes mellitus inadequate control [Unknown]
  - Dysphagia [Recovered/Resolved]
  - Mucosal inflammation [Recovered/Resolved]

NARRATIVE: CASE EVENT DATE: 20130808
